FAERS Safety Report 13372943 (Version 1)
Quarter: 2017Q1

REPORT INFORMATION
  Report Type: Spontaneous
  Country: US (occurrence: US)
  Receive Date: 20170326
  Receipt Date: 20170326
  Transmission Date: 20170429
  Serious: No
  Sender: FDA-Public Use
  Company Number: None

PATIENT
  Age: 65 Year
  Sex: Female
  Weight: 52.65 kg

DRUGS (8)
  1. CENTRUM MULTIGUMMIES VITAMINS FOR WOMEN [Concomitant]
  2. ESCITALOPRAM [Concomitant]
     Active Substance: ESCITALOPRAM OXALATE
  3. BETAHISTINE [Concomitant]
     Active Substance: BETAHISTINE
  4. SUMATRIPTAN. [Concomitant]
     Active Substance: SUMATRIPTAN
  5. MAG-OXIDE [Concomitant]
     Active Substance: MAGNESIUM OXIDE
  6. TRIAMTERENE. [Concomitant]
     Active Substance: TRIAMTERENE
  7. DOXYCYCLINE HYCLATE. [Suspect]
     Active Substance: DOXYCYCLINE HYCLATE
     Indication: COUGH
     Dosage: ?          QUANTITY:1 CAPSULE(S);?
     Route: 048
     Dates: start: 20170320, end: 20170322
  8. ATORVASTATIN [Concomitant]
     Active Substance: ATORVASTATIN

REACTIONS (1)
  - Palpitations [None]

NARRATIVE: CASE EVENT DATE: 20170320
